FAERS Safety Report 9417490 (Version 1)
Quarter: 2013Q3

REPORT INFORMATION
  Report Type: Spontaneous
  Country: US (occurrence: None)
  Receive Date: 20130722
  Receipt Date: 20130722
  Transmission Date: 20140515
  Serious: Yes (Other)
  Sender: FDA-Public Use
  Company Number: None

PATIENT
  Sex: Female
  Weight: 61.24 kg

DRUGS (2)
  1. FLUOXETINE [Suspect]
     Route: 048
     Dates: start: 20091101, end: 20130701
  2. MONTELUKAST [Suspect]
     Route: 048
     Dates: start: 20130301, end: 20130701

REACTIONS (2)
  - Drug ineffective [None]
  - Product substitution issue [None]
